FAERS Safety Report 9281511 (Version 4)
Quarter: 2013Q3

REPORT INFORMATION
  Report Type: Spontaneous
  Country: US (occurrence: US)
  Receive Date: 20130509
  Receipt Date: 20130822
  Transmission Date: 20140515
  Serious: Yes (Other)
  Sender: FDA-Public Use
  Company Number: US-MILLENNIUM PHARMACEUTICALS, INC.-2013-03450

PATIENT
  Age: 66 Year
  Sex: Male
  Weight: 77.98 kg

DRUGS (7)
  1. VELCADE [Suspect]
     Indication: PLASMA CELL MYELOMA
     Dosage: 1.3 MG/M2, 1/WEEK
     Route: 042
     Dates: start: 20120402, end: 20120910
  2. VELCADE [Suspect]
     Dosage: 1.3 MG/M2, 1/WEEK
     Route: 042
     Dates: start: 20120910, end: 201301
  3. VELCADE [Suspect]
     Dosage: 1.3 MG/M2, 1/WEEK
     Route: 042
     Dates: start: 201301, end: 20130408
  4. DEXAMETHASONE [Suspect]
     Indication: PLASMA CELL MYELOMA
     Dosage: UNK
     Route: 065
     Dates: start: 20120402, end: 20120910
  5. DEXAMETHASONE [Suspect]
     Dosage: UNK
     Dates: start: 20120910, end: 201301
  6. ZOMETA [Suspect]
     Indication: PLASMA CELL MYELOMA
     Dosage: UNK
     Route: 065
     Dates: start: 20120402
  7. REVLIMID [Suspect]
     Indication: PLASMA CELL MYELOMA
     Dosage: UNK
     Route: 065
     Dates: start: 20120910, end: 201301

REACTIONS (2)
  - Gastrooesophageal reflux disease [Recovered/Resolved]
  - Diarrhoea [Unknown]
